FAERS Safety Report 7071148-0 (Version None)
Quarter: 2010Q4

REPORT INFORMATION
  Report Type: 
  Country: None (occurrence: None)
  Receive Date: 20101029
  Receipt Date: 20101026
  Transmission Date: 20110411
  Serious: No
  Sender: FDA-Public Use
  Company Number: US-PFIZER INC-2010137179

PATIENT
  Sex: Female
  Weight: 72.562 kg

DRUGS (2)
  1. XANAX [Suspect]
     Indication: ANXIETY
     Dosage: 0.5 MG, AS NEEDED
     Route: 048
     Dates: start: 20050101
  2. ALPRAZOLAM [Suspect]
     Indication: ANXIETY
     Dosage: UNK

REACTIONS (1)
  - DRUG INEFFECTIVE [None]
